FAERS Safety Report 16764507 (Version 2)
Quarter: 2019Q3

REPORT INFORMATION
  Report Type: Spontaneous
  Country: US (occurrence: US)
  Receive Date: 20190902
  Receipt Date: 20190930
  Transmission Date: 20191005
  Serious: No
  Sender: FDA-Public Use
  Company Number: US-ALKERMES INC.-ALK-2019-004497

PATIENT
  Sex: Male

DRUGS (1)
  1. VIVITROL [Suspect]
     Active Substance: NALTREXONE
     Indication: ALCOHOLISM
     Dosage: 380 MG, QMO
     Route: 030

REACTIONS (10)
  - Oversensing [Recovered/Resolved]
  - Drooling [Recovered/Resolved]
  - Drug ineffective [Unknown]
  - Parosmia [Recovered/Resolved]
  - Weight decreased [Recovered/Resolved]
  - Insomnia [Recovered/Resolved]
  - Suicidal ideation [Recovered/Resolved]
  - Abdominal discomfort [Recovered/Resolved]
  - Hypophagia [Recovered/Resolved]
  - Asocial behaviour [Recovered/Resolved]
